FAERS Safety Report 5890164-5 (Version None)
Quarter: 2008Q3

REPORT INFORMATION
  Report Type: 
  Country: None (occurrence: None)
  Receive Date: 20080919
  Receipt Date: 20080915
  Transmission Date: 20090109
  Serious: Yes (Other)
  Sender: FDA-Public Use
  Company Number: CA-PFIZER INC-2008072504

PATIENT
  Sex: Male

DRUGS (3)
  1. LIPITOR [Suspect]
     Indication: HYPERCHOLESTEROLAEMIA
     Route: 048
     Dates: start: 20080601
  2. DIOVAN HCT [Concomitant]
  3. ATACAND HCT [Concomitant]
     Indication: HYPERTENSION
     Dosage: TEXT:16MG/12.5MG-FREQ:ONCE DAILY
     Route: 048

REACTIONS (3)
  - AGGRESSION [None]
  - IRRITABILITY [None]
  - MOOD SWINGS [None]
